FAERS Safety Report 14032423 (Version 2)
Quarter: 2018Q3

REPORT INFORMATION
  Report Type: Report from Study
  Country: AR (occurrence: AR)
  Receive Date: 20171003
  Receipt Date: 20180820
  Transmission Date: 20181010
  Serious: Yes (Hospitalization, Other)
  Sender: FDA-Public Use
  Company Number: AR-ROCHE-1910527

PATIENT
  Age: 45 Year
  Sex: Female

DRUGS (4)
  1. XOLAIR [Suspect]
     Active Substance: OMALIZUMAB
     Dosage: 2 DF (150 MG)
     Route: 065
     Dates: start: 20170807
  2. XOLAIR [Suspect]
     Active Substance: OMALIZUMAB
     Indication: URTICARIA CHRONIC
     Dosage: (150 MG)
     Route: 065
     Dates: start: 201608, end: 201609
  3. XOLAIR [Suspect]
     Active Substance: OMALIZUMAB
     Dosage: 2 DF (150 MG)
     Route: 065
     Dates: end: 201701
  4. XOLAIR [Suspect]
     Active Substance: OMALIZUMAB
     Dosage: 2 DF (150 MG)
     Route: 065
     Dates: end: 20170315

REACTIONS (13)
  - Affect lability [Recovered/Resolved]
  - Autoimmune thyroiditis [Recovered/Resolved]
  - Malaise [Not Recovered/Not Resolved]
  - Headache [Unknown]
  - Depressed mood [Recovered/Resolved]
  - Inflammation [Unknown]
  - Swelling face [Unknown]
  - Mouth swelling [Unknown]
  - Nausea [Unknown]
  - Drug intolerance [Not Recovered/Not Resolved]
  - Abdominal discomfort [Unknown]
  - Immunodeficiency [Unknown]
  - Anaemia [Unknown]

NARRATIVE: CASE EVENT DATE: 201708
